FAERS Safety Report 10682644 (Version 1)
Quarter: 2014Q4

REPORT INFORMATION
  Report Type: Spontaneous
  Country: JP (occurrence: JP)
  Receive Date: 20141230
  Receipt Date: 20141230
  Transmission Date: 20150529
  Serious: Yes (Other)
  Sender: FDA-Public Use
  Company Number: JP-PFIZER INC-2014357628

PATIENT
  Sex: Male

DRUGS (9)
  1. THYRADIN S [Concomitant]
     Active Substance: LEVOTHYROXINE SODIUM
     Dosage: UNK
  2. HUMATROPE [Concomitant]
     Active Substance: SOMATROPIN
     Dosage: UNK
  3. DEPAKENE [Concomitant]
     Active Substance: VALPROIC ACID
     Dosage: UNK
  4. ZYLORIC [Concomitant]
     Active Substance: ALLOPURINOL
     Dosage: UNK
  5. MINIRINMELT [Concomitant]
     Active Substance: DESMOPRESSIN ACETATE
     Dosage: UNK
  6. CORTRIL [Suspect]
     Active Substance: HYDROCORTISONE
     Indication: HYPOPITUITARISM
     Dosage: UNK
  7. ALFAROL [Concomitant]
     Active Substance: ALFACALCIDOL
     Dosage: UNK
  8. LAC B [Concomitant]
     Active Substance: BIFIDOBACTERIUM SPP.
     Dosage: UNK
  9. SEDIEL [Concomitant]
     Active Substance: TANDOSPIRONE
     Dosage: UNK

REACTIONS (4)
  - Facial pain [Unknown]
  - Varicella [Unknown]
  - VIIth nerve paralysis [Unknown]
  - Nasopharyngitis [Unknown]
